FAERS Safety Report 10188797 (Version 1)
Quarter: 2014Q2

REPORT INFORMATION
  Report Type: Spontaneous
  Country: US (occurrence: US)
  Receive Date: 20140522
  Receipt Date: 20140522
  Transmission Date: 20141212
  Serious: No
  Sender: FDA-Public Use
  Company Number: US-SA-2014SA023473

PATIENT
  Sex: Female

DRUGS (4)
  1. LANTUS SOLOSTAR [Suspect]
     Indication: TYPE 2 DIABETES MELLITUS
     Route: 051
  2. SOLOSTAR [Concomitant]
  3. VICTOZA [Concomitant]
     Route: 065
  4. ORAL BLOOD GLUCOSE LOWERING DRUGS [Concomitant]
     Route: 065

REACTIONS (3)
  - Malaise [Unknown]
  - Glycosylated haemoglobin increased [Unknown]
  - Drug ineffective [Unknown]
